FAERS Safety Report 20672335 (Version 1)
Quarter: 2022Q2

REPORT INFORMATION
  Report Type: Spontaneous
  Country: US (occurrence: US)
  Receive Date: 20220405
  Receipt Date: 20220405
  Transmission Date: 20220720
  Serious: No
  Sender: FDA-Public Use
  Company Number: US-HERON THERAPEUTICS, INC-HRTX-2022-000759

PATIENT
  Age: 73 Year
  Sex: Male

DRUGS (16)
  1. ZYNRELEF [Suspect]
     Active Substance: BUPIVACAINE\MELOXICAM
     Indication: Postoperative analgesia
     Dosage: 14 MILLILITER (BUPIVACAINE 400MG/ MELOXICAM 12MG), SINGLE
     Route: 026
     Dates: start: 20220307, end: 20220307
  2. CYANOCOBALAMIN [Concomitant]
     Active Substance: CYANOCOBALAMIN
     Indication: Product used for unknown indication
     Dosage: UNK
  3. CHOLECALCIFEROL [Concomitant]
     Active Substance: CHOLECALCIFEROL
     Indication: Product used for unknown indication
     Dosage: 400 INTERNATIONAL UNIT, QD
     Route: 048
     Dates: start: 20220307
  4. CALCIUM CITRATE [Concomitant]
     Active Substance: CALCIUM CITRATE
     Indication: Product used for unknown indication
     Dosage: 250 MILLIGRAM, QD
     Route: 048
  5. DOCUSATE [Concomitant]
     Active Substance: DOCUSATE
     Indication: Product used for unknown indication
     Dosage: 100 MILLIGRAM, BID
     Route: 048
     Dates: start: 20220307
  6. TRAMADOL [Concomitant]
     Active Substance: TRAMADOL
     Indication: Pain
     Dosage: 100 MILLIGRAM, Q4H
     Route: 048
     Dates: start: 20220307
  7. MAALOX PLUS EXTRA STRENGTH [Concomitant]
     Indication: Product used for unknown indication
     Dosage: 30 MILLILITER, Q2H, PRN
     Route: 048
     Dates: start: 20220307
  8. CYCLOBENZAPRINE [Concomitant]
     Active Substance: CYCLOBENZAPRINE
     Indication: Myalgia
     Dosage: 5 MILLIGRAM, Q6H
     Route: 048
     Dates: start: 20220307
  9. MAGNESIUM HYDROXIDE [Concomitant]
     Active Substance: MAGNESIUM HYDROXIDE
     Indication: Constipation
     Dosage: 30 MILLILITER, Q24H, PRN
     Route: 048
     Dates: start: 20220307
  10. HYDROMORPHONE [Concomitant]
     Active Substance: HYDROMORPHONE
     Indication: Pain
     Dosage: 2 MILLIGRAM, Q4H, PRN
     Route: 042
     Dates: start: 20220307
  11. DIETARY SUPPLEMENT [Concomitant]
     Active Substance: DIETARY SUPPLEMENT
     Indication: Product used for unknown indication
     Dosage: 1 BOTTLE, Q24H
     Route: 048
     Dates: start: 20220307
  12. BISACODYL [Concomitant]
     Active Substance: BISACODYL
     Indication: Constipation
     Dosage: 10 MILLIGRAM, Q24H, PRN
     Route: 054
     Dates: start: 20220307
  13. ONDANSETRON [Concomitant]
     Active Substance: ONDANSETRON
     Indication: Nausea
     Dosage: 4 MILLIGRAM, Q6H, PRN
     Route: 042
     Dates: start: 20220307
  14. ONDANSETRON [Concomitant]
     Active Substance: ONDANSETRON
     Indication: Vomiting
  15. PROMETHAZINE [Concomitant]
     Active Substance: PROMETHAZINE HYDROCHLORIDE
     Indication: Nausea
     Dosage: 25 MILLIGRAM, Q4H, PRN
     Route: 048
     Dates: start: 20220307
  16. PROMETHAZINE [Concomitant]
     Active Substance: PROMETHAZINE HYDROCHLORIDE
     Indication: Vomiting

REACTIONS (6)
  - Rash [Recovered/Resolved]
  - Pruritus [Unknown]
  - Flushing [Unknown]
  - Dizziness [Unknown]
  - Hyperhidrosis [Unknown]
  - Product odour abnormal [Unknown]

NARRATIVE: CASE EVENT DATE: 20220307
